FAERS Safety Report 21892720 (Version 1)
Quarter: 2023Q1

REPORT INFORMATION
  Report Type: Spontaneous
  Country: US (occurrence: US)
  Receive Date: 20230120
  Receipt Date: 20230120
  Transmission Date: 20230418
  Serious: No
  Sender: FDA-Public Use
  Company Number: ENDG22-01824

PATIENT
  Age: 62 Year
  Sex: Female

DRUGS (3)
  1. PERCOCET [Suspect]
     Active Substance: ACETAMINOPHEN\OXYCODONE HYDROCHLORIDE
     Indication: Pain
     Dosage: 1 DF, UNKNOWN (EVERY SIX HOURS)
     Route: 048
     Dates: start: 202109
  2. PERCOCET [Suspect]
     Active Substance: ACETAMINOPHEN\OXYCODONE HYDROCHLORIDE
     Dosage: 0.5 DF, UNKNOWN
     Route: 048
     Dates: start: 202109
  3. DULOXETINE [Concomitant]
     Active Substance: DULOXETINE
     Indication: Tension
     Dosage: UNK UNKNOWN, PRN
     Route: 048

REACTIONS (3)
  - Intentional product use issue [Unknown]
  - Wrong technique in product usage process [Unknown]
  - Drug ineffective [Unknown]

NARRATIVE: CASE EVENT DATE: 20210901
